FAERS Safety Report 5497078-3 (Version None)
Quarter: 2007Q4

REPORT INFORMATION
  Report Type: 
  Country: None (occurrence: None)
  Receive Date: 20071025
  Receipt Date: 20071019
  Transmission Date: 20080405
  Serious: Yes (Hospitalization)
  Sender: FDA-Public Use
  Company Number: ES-BRISTOL-MYERS SQUIBB COMPANY-13704796

PATIENT
  Age: 49 Year

DRUGS (6)
  1. CETUXIMAB [Suspect]
     Indication: COLON CANCER
     Route: 042
     Dates: start: 20061219, end: 20061228
  2. OXALIPLATIN [Suspect]
     Indication: COLON CANCER
     Route: 042
     Dates: start: 20061219, end: 20061219
  3. FLUOROURACIL [Suspect]
     Indication: COLON CANCER
     Route: 042
     Dates: start: 20061219, end: 20061219
  4. FOLINIC ACID [Suspect]
     Indication: COLON CANCER
     Route: 042
     Dates: start: 20061219, end: 20061219
  5. CEFDITOREN PIVOXIL [Concomitant]
     Indication: ANTIBIOTIC PROPHYLAXIS
  6. NYSTATIN [Concomitant]
     Indication: ANTIBIOTIC PROPHYLAXIS

REACTIONS (6)
  - COUGH [None]
  - DIARRHOEA [None]
  - NAUSEA [None]
  - PYREXIA [None]
  - SPUTUM PURULENT [None]
  - VOMITING [None]
